FAERS Safety Report 5504305-2 (Version None)
Quarter: 2007Q4

REPORT INFORMATION
  Report Type: 
  Country: None (occurrence: None)
  Receive Date: 20071030
  Receipt Date: 20071026
  Transmission Date: 20080405
  Serious: Yes (Death)
  Sender: FDA-Public Use
  Company Number: THQ2007A00201

PATIENT
  Age: 61 Year
  Sex: Female

DRUGS (6)
  1. ACTOS [Suspect]
     Indication: DIABETES MELLITUS
     Dosage: 30 MG
  2. NOVOMIN (DIMENHYDRINATE) [Concomitant]
  3. VALPROATE SODIUM [Concomitant]
  4. LASIX [Concomitant]
  5. THYRAX (LEVOTHYROXINE SODIUM) [Concomitant]
  6. COZAAR [Concomitant]

REACTIONS (1)
  - WEIGHT INCREASED [None]
